FAERS Safety Report 6730150-6 (Version None)
Quarter: 2010Q2

REPORT INFORMATION
  Report Type: 
  Country: None (occurrence: None)
  Receive Date: 20100518
  Receipt Date: 20100505
  Transmission Date: 20101027
  Serious: Yes (Other)
  Sender: FDA-Public Use
  Company Number: US-JNJFOC-20100505367

PATIENT
  Age: 86 Year
  Sex: Female
  Weight: 65.77 kg

DRUGS (3)
  1. CHILDREN'S TYLENOL [Suspect]
     Route: 048
  2. CHILDREN'S TYLENOL [Suspect]
     Indication: PAIN
     Dosage: 1 TO 3 STRIPS, FIRST TIME USE
     Route: 048
  3. LOPRESSOR [Concomitant]
     Indication: HEART RATE INCREASED

REACTIONS (2)
  - KIDNEY INFECTION [None]
  - WRONG DRUG ADMINISTERED [None]
